FAERS Safety Report 5649650-5 (Version None)
Quarter: 2008Q1

REPORT INFORMATION
  Report Type: 
  Country: None (occurrence: None)
  Receive Date: 20080304
  Receipt Date: 20080221
  Transmission Date: 20080703
  Serious: Yes (Other)
  Sender: FDA-Public Use
  Company Number: PH-PFIZER INC-2008012712

PATIENT
  Age: 68 Year
  Sex: Male

DRUGS (4)
  1. SULPERAZONE [Suspect]
     Indication: INTESTINAL OBSTRUCTION
  2. SULPERAZONE [Suspect]
  3. SODIUM POLYSTYRENE SULFONATE [Concomitant]
  4. NEXIUM [Concomitant]

REACTIONS (3)
  - CATHETER SITE HAEMORRHAGE [None]
  - HAEMORRHAGE [None]
  - INJECTION SITE HAEMORRHAGE [None]
